FAERS Safety Report 7855274-1 (Version None)
Quarter: 2011Q4

REPORT INFORMATION
  Report Type: 
  Country: None (occurrence: None)
  Receive Date: 20111026
  Receipt Date: 20111018
  Transmission Date: 20120403
  Serious: Yes (Other)
  Sender: FDA-Public Use
  Company Number: JP-PFIZER INC-2011227443

PATIENT
  Age: 67 Year
  Sex: Female
  Weight: 47.5 kg

DRUGS (3)
  1. LYRICA [Suspect]
     Indication: HYPOAESTHESIA
     Dosage: 25 MG, 1X/DAY
     Route: 048
     Dates: start: 20110921
  2. PROTECADIN [Suspect]
     Indication: HYPOAESTHESIA
     Dosage: 10 MG, 2X/DAY
     Route: 048
     Dates: start: 20110921
  3. PACLITAXEL [Concomitant]
     Indication: OVARIAN CANCER RECURRENT
     Dosage: 110 MG, 1X/DAY
     Route: 042
     Dates: start: 20110318

REACTIONS (1)
  - HYPOTHERMIA [None]
